FAERS Safety Report 8271554-2 (Version None)
Quarter: 2012Q2

REPORT INFORMATION
  Report Type: 
  Country: None (occurrence: None)
  Receive Date: 20120410
  Receipt Date: 20120404
  Transmission Date: 20120825
  Serious: Yes (Hospitalization)
  Sender: FDA-Public Use
  Company Number: US-PFIZER INC-2012085395

PATIENT
  Sex: Male

DRUGS (2)
  1. DILANTIN [Suspect]
     Dosage: UNK
  2. AMOXICILLIN [Suspect]

REACTIONS (1)
  - ANTICONVULSANT DRUG LEVEL INCREASED [None]
